FAERS Safety Report 10068979 (Version 1)
Quarter: 2014Q2

REPORT INFORMATION
  Report Type: Spontaneous
  Country: US (occurrence: US)
  Receive Date: 20140409
  Receipt Date: 20140409
  Transmission Date: 20141212
  Serious: No
  Sender: FDA-Public Use
  Company Number: US-ASTRAZENECA-2014SE01617

PATIENT
  Age: 12802 Day
  Sex: Male
  Weight: 113.4 kg

DRUGS (2)
  1. BRILINTA [Suspect]
     Indication: STENT PLACEMENT
     Route: 048
     Dates: start: 20131221
  2. UNSPECIFIED MEDICATIONS [Concomitant]
     Dosage: UNK UNK

REACTIONS (1)
  - Pharyngitis streptococcal [Unknown]
